FAERS Safety Report 17014995 (Version 2)
Quarter: 2019Q4

REPORT INFORMATION
  Report Type: Spontaneous
  Country: US (occurrence: US)
  Receive Date: 20191111
  Receipt Date: 20191113
  Transmission Date: 20200122
  Serious: Yes (Other)
  Sender: FDA-Public Use
  Company Number: NVSC2019US028931

PATIENT
  Age: 60 Year
  Sex: Male

DRUGS (1)
  1. BUDESONIDE. [Suspect]
     Active Substance: BUDESONIDE
     Indication: CHRONIC OBSTRUCTIVE PULMONARY DISEASE
     Dosage: UNK (10 FOLD THE INTENDED DOSE)
     Route: 055

REACTIONS (6)
  - Intentional product misuse [Unknown]
  - Hypothalamic pituitary adrenal axis suppression [Unknown]
  - Hypotension [Recovered/Resolved]
  - Adrenocortical insufficiency acute [Unknown]
  - Overdose [Unknown]
  - Hypoglycaemia [Unknown]
